FAERS Safety Report 9201445 (Version 1)
Quarter: 2013Q2

REPORT INFORMATION
  Report Type: Spontaneous
  Country: US (occurrence: US)
  Receive Date: 20130401
  Receipt Date: 20130401
  Transmission Date: 20140414
  Serious: Yes (Other)
  Sender: FDA-Public Use
  Company Number: US-JNJFOC-20130315081

PATIENT
  Age: 27 Year
  Sex: Female
  Weight: 58.97 kg

DRUGS (1)
  1. TYLENOL COLD MULTI-SYMPTOM NIGHTTIME [Suspect]
     Indication: NASOPHARYNGITIS
     Route: 048
     Dates: start: 20130316, end: 20130320

REACTIONS (1)
  - Vaginal haemorrhage [Not Recovered/Not Resolved]
